FAERS Safety Report 13752392 (Version 1)
Quarter: 2017Q3

REPORT INFORMATION
  Report Type: Spontaneous
  Country: US (occurrence: US)
  Receive Date: 20170713
  Receipt Date: 20170713
  Transmission Date: 20171127
  Serious: Yes (Other)
  Sender: FDA-Public Use
  Company Number: US-JAZZ-2017-US-006903

PATIENT
  Age: 17 Year
  Sex: Female

DRUGS (4)
  1. SODIUM OXYBATE. [Suspect]
     Active Substance: SODIUM OXYBATE
     Indication: CATAPLEXY
  2. VENLAFAXINE [Suspect]
     Active Substance: VENLAFAXINE HYDROCHLORIDE
     Indication: PRODUCT USED FOR UNKNOWN INDICATION
  3. SODIUM OXYBATE. [Suspect]
     Active Substance: SODIUM OXYBATE
     Indication: NARCOLEPSY
     Route: 048
  4. MODAFINIL. [Concomitant]
     Active Substance: MODAFINIL
     Indication: SOMNOLENCE

REACTIONS (2)
  - Weight decreased [Recovered/Resolved]
  - Drug ineffective [Unknown]
